FAERS Safety Report 17636289 (Version 1)
Quarter: 2020Q2

REPORT INFORMATION
  Report Type: Spontaneous
  Country: TR (occurrence: TR)
  Receive Date: 20200407
  Receipt Date: 20200407
  Transmission Date: 20200713
  Serious: Yes (Hospitalization)
  Sender: FDA-Public Use
  Company Number: TR-SUN PHARMACEUTICAL INDUSTRIES LTD-2020RR-243058

PATIENT
  Age: 39 Year
  Sex: Female

DRUGS (1)
  1. TAMSULOSIN [Suspect]
     Active Substance: TAMSULOSIN
     Indication: URINARY RETENTION
     Dosage: UNK
     Route: 065

REACTIONS (2)
  - Hyperprolactinaemia [Recovering/Resolving]
  - Galactorrhoea [Recovering/Resolving]
